FAERS Safety Report 9134050 (Version 1)
Quarter: 2013Q1

REPORT INFORMATION
  Report Type: Spontaneous
  Country: US (occurrence: US)
  Receive Date: 20130304
  Receipt Date: 20130304
  Transmission Date: 20140127
  Serious: Yes (Other)
  Sender: FDA-Public Use
  Company Number: US-AMGEN-USASP2013013875

PATIENT
  Age: 56 Year
  Sex: Male
  Weight: 73.47 kg

DRUGS (5)
  1. ENBREL [Suspect]
     Indication: PSORIATIC ARTHROPATHY
     Dosage: 50 MG, QWK
     Dates: start: 2012, end: 201301
  2. NAPROXEN [Suspect]
     Indication: PSORIATIC ARTHROPATHY
     Dosage: 500 MG, BID
     Dates: start: 2011, end: 2012
  3. NSAID^S [Suspect]
     Indication: PSORIATIC ARTHROPATHY
     Dosage: UNK
     Dates: start: 2011, end: 2012
  4. PREDNISONE [Concomitant]
     Indication: PSORIATIC ARTHROPATHY
     Dosage: 10 MG, QD
  5. CELEBREX [Concomitant]
     Indication: PSORIATIC ARTHROPATHY
     Dosage: 200 MG, BID

REACTIONS (4)
  - Adrenal disorder [Recovered/Resolved]
  - Constipation [Recovered/Resolved]
  - Lung disorder [Recovered/Resolved]
  - Dyspnoea [Recovered/Resolved]
